FAERS Safety Report 7628410-X (Version None)
Quarter: 2011Q3

REPORT INFORMATION
  Report Type: 
  Country: None (occurrence: None)
  Receive Date: 20110722
  Receipt Date: 20110719
  Transmission Date: 20111222
  Serious: No
  Sender: FDA-Public Use
  Company Number: US-PFIZER INC-2011164250

PATIENT
  Sex: Female

DRUGS (3)
  1. TOVIAZ [Suspect]
     Indication: INCONTINENCE
     Dosage: 4 MG, 1X/DAY
     Route: 048
     Dates: start: 20110630
  2. SYNTHROID [Concomitant]
     Indication: THYROID DISORDER
     Dosage: UNK
  3. COZAAR [Concomitant]
     Dosage: UNK

REACTIONS (2)
  - FLATULENCE [None]
  - DIARRHOEA [None]
